FAERS Safety Report 13682303 (Version 1)
Quarter: 2017Q2

REPORT INFORMATION
  Report Type: Spontaneous
  Country: US (occurrence: US)
  Receive Date: 20170623
  Receipt Date: 20170623
  Transmission Date: 20170830
  Serious: Yes (Hospitalization)
  Sender: FDA-Public Use
  Company Number: US-MALLINCKRODT-T201605897

PATIENT
  Sex: Female

DRUGS (11)
  1. SABRIL [Suspect]
     Active Substance: VIGABATRIN
     Dosage: SUSPENSION, 12 ML, TWICE DAILY
     Dates: start: 201606, end: 2016
  2. SABRIL [Suspect]
     Active Substance: VIGABATRIN
     Dosage: SUSPENSION, 10 ML THREE TIMES DAILY
     Route: 065
     Dates: start: 2016, end: 2016
  3. SABRIL [Suspect]
     Active Substance: VIGABATRIN
     Dosage: SUSPENSION, 11 ML TWICE DAILY
     Route: 065
     Dates: start: 2016, end: 2016
  4. TOPAMAX [Concomitant]
     Active Substance: TOPIRAMATE
     Indication: PRODUCT USED FOR UNKNOWN INDICATION
     Dosage: UNKNOWN
  5. NEXIUM SPRINKLES [Concomitant]
     Indication: PRODUCT USED FOR UNKNOWN INDICATION
     Dosage: UNKNOWN
  6. KLONOPIN [Concomitant]
     Active Substance: CLONAZEPAM
     Indication: PRODUCT USED FOR UNKNOWN INDICATION
     Dosage: UNKNOWN
  7. H.P. ACTHAR [Suspect]
     Active Substance: CORTICOTROPIN
     Indication: PRODUCT USED FOR UNKNOWN INDICATION
     Dosage: UNKNOWN
     Route: 065
     Dates: end: 20160914
  8. SODIUM BICARBONATE. [Concomitant]
     Active Substance: SODIUM BICARBONATE
     Indication: PRODUCT USED FOR UNKNOWN INDICATION
     Dosage: UNKNOWN
  9. SABRIL [Suspect]
     Active Substance: VIGABATRIN
     Dosage: SUSPENSION, 10 ML TWICE DAILY
     Route: 065
     Dates: start: 2016, end: 2016
  10. SABRIL [Suspect]
     Active Substance: VIGABATRIN
     Indication: INFANTILE SPASMS
     Dosage: 9 ML TWICE DAILY
     Route: 065
     Dates: start: 2016
  11. SABRIL [Suspect]
     Active Substance: VIGABATRIN
     Dosage: SUSPENSION, 8 ML TWICE DAILY
     Route: 065
     Dates: start: 2016, end: 2016

REACTIONS (5)
  - Rash macular [Unknown]
  - Vomiting [Unknown]
  - Rhinovirus infection [Unknown]
  - Agitation [Unknown]
  - Flushing [Unknown]

NARRATIVE: CASE EVENT DATE: 2016
